FAERS Safety Report 23064474 (Version 21)
Quarter: 2024Q2

REPORT INFORMATION
  Report Type: Report from Study
  Country: CO (occurrence: CO)
  Receive Date: 20231013
  Receipt Date: 20240606
  Transmission Date: 20240717
  Serious: Yes (Hospitalization, Other)
  Sender: FDA-Public Use
  Company Number: CO-TAKEDA-2023TUS098165

PATIENT
  Age: 32 Year
  Sex: Female
  Weight: 47 kg

DRUGS (16)
  1. TEDUGLUTIDE [Suspect]
     Active Substance: TEDUGLUTIDE
     Indication: Short-bowel syndrome
     Dosage: 3 MILLIGRAM, QD
     Route: 058
     Dates: start: 20231009
  2. TEDUGLUTIDE [Suspect]
     Active Substance: TEDUGLUTIDE
     Indication: Short-bowel syndrome
     Dosage: 3 MILLIGRAM, QD
     Route: 058
     Dates: start: 20231009
  3. TEDUGLUTIDE [Suspect]
     Active Substance: TEDUGLUTIDE
     Indication: Short-bowel syndrome
     Dosage: 3 MILLIGRAM, QD
     Route: 058
     Dates: start: 20231009
  4. TEDUGLUTIDE [Suspect]
     Active Substance: TEDUGLUTIDE
     Indication: Short-bowel syndrome
     Dosage: 3 MILLIGRAM, QD
     Route: 058
     Dates: start: 20231009
  5. TEDUGLUTIDE [Suspect]
     Active Substance: TEDUGLUTIDE
     Dosage: 2.3 MILLIGRAM, QD
     Route: 058
  6. TEDUGLUTIDE [Suspect]
     Active Substance: TEDUGLUTIDE
     Dosage: 2.3 MILLIGRAM, QD
     Route: 058
  7. TEDUGLUTIDE [Suspect]
     Active Substance: TEDUGLUTIDE
     Dosage: 2.3 MILLIGRAM, QD
     Route: 058
  8. TEDUGLUTIDE [Suspect]
     Active Substance: TEDUGLUTIDE
     Dosage: 2.3 MILLIGRAM, QD
     Route: 058
  9. MINERALS\VITAMINS [Concomitant]
     Active Substance: MINERALS\VITAMINS
     Dosage: UNK
     Route: 065
  10. LOPERAMIDE [Concomitant]
     Active Substance: LOPERAMIDE
     Dosage: UNK
     Route: 065
  11. OMEPRAZOLE [Concomitant]
     Active Substance: DONEPEZIL HYDROCHLORIDE\OMEPRAZOLE\OMEPRAZOLE MAGNESIUM
     Dosage: UNK
     Route: 065
  12. PREGABALIN [Concomitant]
     Active Substance: PREGABALIN
     Dosage: 225 MILLIGRAM, QD
     Route: 065
  13. SUCRALFATE [Concomitant]
     Active Substance: SUCRALFATE
     Dosage: UNK
     Route: 065
  14. MAGNESIUM [Concomitant]
     Active Substance: MAGNESIUM
     Dosage: UNK UNK, QD
     Route: 042
  15. LACTATED RINGERS SOLUTION [Concomitant]
     Active Substance: CALCIUM CHLORIDE\POTASSIUM CHLORIDE\SODIUM CHLORIDE\SODIUM LACTATE
     Dosage: UNK UNK, QD
     Route: 042
  16. VITAMIN D3 [Concomitant]
     Active Substance: CHOLECALCIFEROL
     Dosage: UNK
     Route: 065

REACTIONS (11)
  - Pyrexia [Unknown]
  - Dysuria [Unknown]
  - Bacteraemia [Recovered/Resolved]
  - Pollakiuria [Unknown]
  - Weight decreased [Unknown]
  - Malaise [Not Recovered/Not Resolved]
  - Treatment noncompliance [Unknown]
  - Abdominal pain [Not Recovered/Not Resolved]
  - Product distribution issue [Unknown]
  - Product prescribing error [Unknown]
  - Incorrect dose administered [Unknown]

NARRATIVE: CASE EVENT DATE: 20231009
